FAERS Safety Report 8494522-4 (Version None)
Quarter: 2012Q3

REPORT INFORMATION
  Report Type: 
  Country: None (occurrence: None)
  Receive Date: 20120709
  Receipt Date: 20120626
  Transmission Date: 20120928
  Serious: No
  Sender: FDA-Public Use
  Company Number: US-ASTRAZENECA-2011SE41450

PATIENT
  Age: 59 Year
  Sex: Female

DRUGS (43)
  1. CELLCEPT [Concomitant]
     Dates: start: 20061116
  2. PREMARIN [Concomitant]
     Dosage: 625
     Dates: start: 20061116
  3. PEPCID [Concomitant]
     Dates: start: 19920101, end: 19940101
  4. MESTINON [Concomitant]
     Dates: start: 20090622
  5. CYCLOBENZAPRINE [Concomitant]
     Route: 048
     Dates: start: 20050202
  6. PRILOSEC [Concomitant]
  7. ZANTAC [Concomitant]
     Dosage: ONCE A DAY
     Dates: start: 19920101, end: 19940101
  8. PRISTIQ [Concomitant]
     Indication: POOR QUALITY SLEEP
  9. NEXIUM [Suspect]
     Route: 048
  10. NEXIUM [Suspect]
     Route: 048
     Dates: start: 20050225
  11. FOSAMAX [Concomitant]
     Indication: OSTEOPOROSIS
  12. MESTRON [Concomitant]
     Indication: MUSCLE DISORDER
  13. PREMARIN [Concomitant]
     Dates: start: 20090622
  14. CARVEDILOL [Concomitant]
     Indication: BLOOD PRESSURE
  15. DIAZEPAM [Concomitant]
     Indication: DEPRESSION
  16. EFFEXOR [Concomitant]
     Route: 048
     Dates: start: 20041215
  17. NEXIUM [Suspect]
     Indication: GASTROOESOPHAGEAL REFLUX DISEASE
     Dosage: 20 OR 40 MG ONCE A DAY
     Route: 048
     Dates: start: 20010101, end: 20110101
  18. NEXIUM [Suspect]
     Indication: ABDOMINAL DISCOMFORT
     Dosage: 20 OR 40 MG ONCE A DAY
     Route: 048
     Dates: start: 20010101, end: 20110101
  19. NEXIUM [Suspect]
     Route: 048
     Dates: start: 20050225
  20. NEXIUM [Suspect]
     Route: 048
     Dates: start: 20090622
  21. NEXIUM [Suspect]
     Route: 048
     Dates: start: 20090622
  22. LORATADINE [Concomitant]
     Indication: SINUS DISORDER
     Route: 048
  23. LIPITOR [Concomitant]
     Indication: BLOOD CHOLESTEROL
  24. NEXIUM [Suspect]
     Indication: ULCER
     Dosage: 20 OR 40 MG ONCE A DAY
     Route: 048
     Dates: start: 20010101, end: 20110101
  25. NEXIUM [Suspect]
     Route: 048
  26. CELLCEPT [Concomitant]
     Indication: MUSCLE DISORDER
     Dosage: 500 MG, 2 TABLETS, TWICE A DAY
  27. SUCRALFATE [Concomitant]
     Indication: GASTRITIS PROPHYLAXIS
     Dosage: 1 GM, 1 TABLET, 1/2 HOURBEFORE EACH MEAL
  28. CISPLATIN [Concomitant]
     Indication: PAIN
     Dosage: 300 MG, 3 TABLETS AT BEDTIME
  29. ZOLOFT [Concomitant]
     Dates: start: 20061116
  30. PREMARIN [Concomitant]
     Dates: start: 20070308
  31. FLUCONAZOLE [Concomitant]
     Route: 048
     Dates: start: 20050202
  32. DETROL XL [Concomitant]
     Indication: HYPERTONIC BLADDER
     Dates: start: 20061116
  33. PREMARIN [Concomitant]
     Indication: HORMONE LEVEL ABNORMAL
  34. SINGULAIR [Concomitant]
     Indication: SINUS DISORDER
  35. DIAZEPAM [Concomitant]
     Indication: SLEEP DISORDER
  36. HYDROCODONE [Concomitant]
     Indication: BONE PAIN
     Dosage: 5 TO 3.25 MG, 6 TO 8 HOURS AS NEEDED
  37. MESTINON [Concomitant]
     Dates: start: 20061116
  38. DETROL XL [Concomitant]
     Dosage: EVERY DAY
     Dates: start: 20070308
  39. NEXIUM [Suspect]
     Route: 048
  40. NEXIUM [Suspect]
     Route: 048
     Dates: start: 20050225
  41. NEXIUM [Suspect]
     Route: 048
     Dates: start: 20090622
  42. ASPIRIN [Concomitant]
     Indication: CARDIAC DISORDER
  43. PANTOPRAZOLE [Concomitant]
     Indication: ABDOMINAL DISCOMFORT

REACTIONS (13)
  - CHILLS [None]
  - DYSPHAGIA [None]
  - GASTRIC DISORDER [None]
  - OSTEOPOROSIS [None]
  - ANKLE FRACTURE [None]
  - CALCIUM DEFICIENCY [None]
  - GRIEF REACTION [None]
  - ARTHRITIS [None]
  - PYREXIA [None]
  - VITAMIN D DEFICIENCY [None]
  - DYSPEPSIA [None]
  - POOR QUALITY SLEEP [None]
  - DEPRESSION [None]
